FAERS Safety Report 20899915 (Version 1)
Quarter: 2022Q2

REPORT INFORMATION
  Report Type: Spontaneous
  Country: US (occurrence: None)
  Receive Date: 20220531
  Receipt Date: 20220531
  Transmission Date: 20220721
  Serious: Yes (Hospitalization)
  Sender: FDA-Public Use
  Company Number: None

PATIENT
  Age: 72 Year
  Sex: Male

DRUGS (1)
  1. CEFUROXIME [Suspect]
     Active Substance: CEFUROXIME
     Indication: COVID-19
     Dosage: 250 MG TWICE A DAY ORAL
     Route: 048

REACTIONS (3)
  - Dizziness [None]
  - Hypertension [None]
  - Blood glucose increased [None]

NARRATIVE: CASE EVENT DATE: 20220530
